FAERS Safety Report 10677029 (Version 1)
Quarter: 2014Q4

REPORT INFORMATION
  Report Type: Spontaneous
  Country: US (occurrence: US)
  Receive Date: 20141226
  Receipt Date: 20141226
  Transmission Date: 20150529
  Serious: Yes (Hospitalization)
  Sender: FDA-Public Use
  Company Number: US-SA-2014SA175652

PATIENT
  Age: 24 Year
  Sex: Female

DRUGS (19)
  1. PREDNISONE. [Suspect]
     Active Substance: PREDNISONE
     Indication: ACUTE PROMYELOCYTIC LEUKAEMIA
     Dosage: SCHEDULED ON DAY 21, 23, 25 , 27
     Route: 065
  2. METOPROLOL SALT NOT SPECIFIED [Suspect]
     Active Substance: METOPROLOL
     Indication: CARDIOMYOPATHY
     Route: 065
  3. METOPROLOL SALT NOT SPECIFIED [Suspect]
     Active Substance: METOPROLOL
     Indication: ATRIAL FIBRILLATION
     Route: 065
  4. METOPROLOL SALT NOT SPECIFIED [Suspect]
     Active Substance: METOPROLOL
     Indication: CARDIOMYOPATHY
     Route: 065
  5. PREDNISONE. [Suspect]
     Active Substance: PREDNISONE
     Indication: MYOCARDITIS
     Dosage: DOSE TAPERING 10 MG/WEEK
     Route: 065
  6. METOPROLOL SALT NOT SPECIFIED [Suspect]
     Active Substance: METOPROLOL
     Indication: ATRIAL FIBRILLATION
     Route: 065
  7. PREDNISONE. [Suspect]
     Active Substance: PREDNISONE
     Indication: MYOCARDITIS
     Dosage: SCHEDULED ON DAY 21, 23, 25 , 27
     Route: 065
  8. IDARUBICIN [Suspect]
     Active Substance: IDARUBICIN
     Indication: ACUTE PROMYELOCYTIC LEUKAEMIA
     Route: 065
  9. TRETINOIN/LIPOSOMAL TRETINOIN [Suspect]
     Active Substance: TRETINOIN
     Indication: ACUTE PROMYELOCYTIC LEUKAEMIA
     Route: 065
  10. ISOSORBIDE DINITRATE. [Suspect]
     Active Substance: ISOSORBIDE DINITRATE
     Indication: INCREASED VENTRICULAR AFTERLOAD
     Route: 065
  11. PREDNISONE. [Suspect]
     Active Substance: PREDNISONE
     Indication: MYOCARDITIS
     Route: 065
  12. PREDNISONE. [Suspect]
     Active Substance: PREDNISONE
     Indication: MYOCARDITIS
     Route: 065
  13. METOPROLOL SALT NOT SPECIFIED [Suspect]
     Active Substance: METOPROLOL
     Indication: ARRHYTHMIA PROPHYLAXIS
     Route: 065
  14. PREDNISONE. [Suspect]
     Active Substance: PREDNISONE
     Indication: ACUTE PROMYELOCYTIC LEUKAEMIA
     Route: 065
  15. PREDNISONE. [Suspect]
     Active Substance: PREDNISONE
     Indication: ACUTE PROMYELOCYTIC LEUKAEMIA
     Dosage: DOSE TAPERING 10 MG/WEEK
     Route: 065
  16. METOPROLOL SALT NOT SPECIFIED [Suspect]
     Active Substance: METOPROLOL
     Indication: ARRHYTHMIA PROPHYLAXIS
     Route: 065
  17. DEXAMETHASONE. [Suspect]
     Active Substance: DEXAMETHASONE
     Indication: MATERNAL THERAPY TO ENHANCE FOETAL LUNG MATURITY
     Route: 065
  18. PREDNISONE. [Suspect]
     Active Substance: PREDNISONE
     Indication: ACUTE PROMYELOCYTIC LEUKAEMIA
     Route: 065
  19. FUROSEMIDE. [Suspect]
     Active Substance: FUROSEMIDE
     Indication: POLYURIA
     Route: 065

REACTIONS (21)
  - Electrocardiogram ST segment elevation [Recovered/Resolved]
  - Electrocardiogram abnormal [Recovered/Resolved]
  - Echocardiogram abnormal [Recovered/Resolved]
  - Exposure during pregnancy [Unknown]
  - Product use issue [Unknown]
  - Tachycardia [Recovered/Resolved]
  - White blood cell count increased [Recovered/Resolved]
  - Myocarditis [Recovered/Resolved]
  - Troponin increased [Recovered/Resolved]
  - Ejection fraction decreased [Recovered/Resolved]
  - Bacteraemia [Unknown]
  - Chest pain [Recovered/Resolved]
  - Heart sounds abnormal [Recovered/Resolved]
  - Pericardial effusion [Recovered/Resolved]
  - Pain [Recovered/Resolved]
  - Pericardial rub [Recovered/Resolved]
  - Brain natriuretic peptide increased [Recovered/Resolved]
  - Blood pressure systolic increased [Recovered/Resolved]
  - Pulmonary oedema [Recovered/Resolved]
  - Atrial fibrillation [Recovered/Resolved]
  - Hyperglycaemia [Unknown]
